FAERS Safety Report 22396491 (Version 1)
Quarter: 2023Q2

REPORT INFORMATION
  Report Type: Spontaneous
  Country: US (occurrence: US)
  Receive Date: 20230601
  Receipt Date: 20230601
  Transmission Date: 20230722
  Serious: No
  Sender: FDA-Public Use
  Company Number: US-APIL-2312104US

PATIENT

DRUGS (1)
  1. LATISSE [Suspect]
     Active Substance: BIMATOPROST
     Indication: Product used for unknown indication
     Route: 003

REACTIONS (3)
  - Prostaglandin analogue periorbitopathy [Not Recovered/Not Resolved]
  - Lid sulcus deepened [Not Recovered/Not Resolved]
  - Skin discolouration [Not Recovered/Not Resolved]
